FAERS Safety Report 4751194-X (Version None)
Quarter: 2005Q3

REPORT INFORMATION
  Report Type: 
  Country: None (occurrence: None)
  Receive Date: 20050822
  Receipt Date: 20050811
  Transmission Date: 20060218
  Serious: Yes (Hospitalization)
  Sender: FDA-Public Use
  Company Number: 2005-02958

PATIENT
  Age: 85 Year
  Sex: Male

DRUGS (1)
  1. PROPAFENONE (WATSON LABORATORIES) PROPAFENONE HYDROCHLORIDE) TABLET [Suspect]
     Indication: ATRIAL FIBRILLATION
     Dosage: 75 MG, TID, ORAL
     Route: 048

REACTIONS (2)
  - ACUTE GENERALISED EXANTHEMATOUS PUSTULOSIS [None]
  - SKIN EXFOLIATION [None]
